FAERS Safety Report 25293793 (Version 1)
Quarter: 2025Q2

REPORT INFORMATION
  Report Type: Spontaneous
  Country: US (occurrence: US)
  Receive Date: 20250510
  Receipt Date: 20250510
  Transmission Date: 20250716
  Serious: No
  Sender: SANOFI AVENTIS
  Company Number: US-SA-2025SA126861

PATIENT
  Age: 6 Year
  Sex: Male

DRUGS (2)
  1. DUPIXENT [Suspect]
     Active Substance: DUPILUMAB
     Indication: Eczema
     Dosage: 300 MG, Q4W
     Route: 058
     Dates: start: 2024, end: 202502
  2. DUPIXENT [Suspect]
     Active Substance: DUPILUMAB
     Dates: start: 2025

REACTIONS (1)
  - Rebound eczema [Recovered/Resolved]

NARRATIVE: CASE EVENT DATE: 20250201
